FAERS Safety Report 22274888 (Version 2)
Quarter: 2024Q3

REPORT INFORMATION
  Report Type: Spontaneous
  Country: US (occurrence: US)
  Receive Date: 20230502
  Receipt Date: 20240815
  Transmission Date: 20241017
  Serious: No
  Sender: RVL PHARMACEUTICALS
  Company Number: US-RVL_Pharmaceuticals-USA-POI1255202300041

PATIENT
  Age: 79 Year
  Sex: Female

DRUGS (2)
  1. UPNEEQ [Suspect]
     Active Substance: OXYMETAZOLINE HYDROCHLORIDE
     Indication: Eyelid ptosis
     Dosage: OD
     Route: 047
     Dates: start: 202301, end: 20230718
  2. UPNEEQ [Suspect]
     Active Substance: OXYMETAZOLINE HYDROCHLORIDE
     Dosage: OD
     Route: 047
     Dates: start: 202301, end: 202301

REACTIONS (1)
  - Headache [Recovered/Resolved]

NARRATIVE: CASE EVENT DATE: 20230101
